FAERS Safety Report 11319051 (Version 1)
Quarter: 2015Q3

REPORT INFORMATION
  Report Type: Spontaneous
  Country: US (occurrence: None)
  Receive Date: 20150727
  Receipt Date: 20150727
  Transmission Date: 20151125
  Serious: Yes (Hospitalization, Other)
  Sender: FDA-Public Use
  Company Number: HA15-197-AE

PATIENT
  Age: 69 Year
  Sex: Male
  Weight: 74.3 kg

DRUGS (18)
  1. PLACEBO [Suspect]
     Active Substance: UNSPECIFIED INGREDIENT
     Indication: RHEUMATOID ARTHRITIS
  2. CELECOXIB. [Suspect]
     Active Substance: CELECOXIB
     Indication: RHEUMATOID ARTHRITIS
  3. RANITIDINE [Suspect]
     Active Substance: RANITIDINE\RANITIDINE HYDROCHLORIDE
  4. HYDROCODONE BITARTRATE / PARACETAMOL (LORTAB) [Concomitant]
  5. CLOPIDOGREL SULFATE (PLAVIX) [Concomitant]
  6. ACETYLSALICYLIC ACID (ASPIRIN) [Concomitant]
  7. IBUPROFEN. [Suspect]
     Active Substance: IBUPROFEN
     Indication: RHEUMATOID ARTHRITIS
  8. HYDROXYZINE [Concomitant]
     Active Substance: HYDROXYZINE\HYDROXYZINE HYDROCHLORIDE
  9. NAPROXEN TABLETS [Suspect]
     Active Substance: NAPROXEN
     Indication: OSTEOARTHRITIS
     Route: 048
     Dates: start: 20110526, end: 20120410
  10. HYDRALAZINE [Concomitant]
     Active Substance: HYDRALAZINE HYDROCHLORIDE
  11. GLIPIZIDE. [Concomitant]
     Active Substance: GLIPIZIDE
  12. FUROSEMIDE. [Concomitant]
     Active Substance: FUROSEMIDE
  13. LIPITOR [Concomitant]
     Active Substance: ATORVASTATIN CALCIUM
  14. NEXIUM [Concomitant]
     Active Substance: ESOMEPRAZOLE MAGNESIUM
  15. METOPROLOL [Suspect]
     Active Substance: METOPROLOL
  16. HYDROCHLOROTHIAZIDE/LISINOPRIL (LISINOPRIL HCT) [Concomitant]
  17. KLOR-CON [Concomitant]
     Active Substance: POTASSIUM CHLORIDE
  18. METFORMIN HYDROCHLORIDE (GLUCOPHAGE) [Concomitant]

REACTIONS (12)
  - Escherichia sepsis [None]
  - Chronic obstructive pulmonary disease [None]
  - Diastolic dysfunction [None]
  - Hypoxia [None]
  - Atrioventricular block complete [None]
  - Pneumonia klebsiella [None]
  - Pulmonary congestion [None]
  - Hypoglycaemia [None]
  - Bronchitis [None]
  - Respiratory distress [None]
  - Pneumonia [None]
  - Atelectasis [None]

NARRATIVE: CASE EVENT DATE: 20130525
